FAERS Safety Report 8614524-4 (Version None)
Quarter: 2012Q3

REPORT INFORMATION
  Report Type: 
  Country: None (occurrence: None)
  Receive Date: 20120823
  Receipt Date: 20120820
  Transmission Date: 20120928
  Serious: Yes (Other)
  Sender: FDA-Public Use
  Company Number: PHHY2009CA28681

PATIENT
  Sex: Female

DRUGS (3)
  1. SANDOSTATIN LAR [Suspect]
     Dosage: 30 MG, EVERY FOUR WEEKS
     Route: 030
     Dates: end: 20070712
  2. SANDOSTATIN LAR [Suspect]
     Indication: PANCREATIC NEUROENDOCRINE TUMOUR
     Dosage: 20 MG, UNK
     Route: 030
     Dates: start: 20070125
  3. SANDOSTATIN LAR [Suspect]
     Dosage: 30 MG, QMO
     Route: 030

REACTIONS (9)
  - BLOOD PRESSURE SYSTOLIC INCREASED [None]
  - ALOPECIA [None]
  - RASH [None]
  - HIATUS HERNIA [None]
  - ERYTHEMA [None]
  - METASTASIS [None]
  - SKIN PLAQUE [None]
  - WEIGHT INCREASED [None]
  - ABDOMINAL PAIN UPPER [None]
